FAERS Safety Report 10558896 (Version 1)
Quarter: 2014Q4

REPORT INFORMATION
  Report Type: Spontaneous
  Country: IT (occurrence: IT)
  Receive Date: 20141101
  Receipt Date: 20141101
  Transmission Date: 20150529
  Serious: Yes (Hospitalization)
  Sender: FDA-Public Use
  Company Number: IT-TEVA-518250ISR

PATIENT
  Age: 32 Year
  Sex: Male

DRUGS (3)
  1. DEPAKIN CHRONO 500 MG [Concomitant]
     Active Substance: VALPROIC ACID
     Dosage: 1000 MILLIGRAM DAILY;
     Route: 048
  2. MAVERAL 100 MG [Concomitant]
     Dosage: 200 MILLIGRAM DAILY;
     Route: 048
  3. RISPERIDONE TEVA 2 MG [Suspect]
     Active Substance: RISPERIDONE
     Indication: OBSESSIVE-COMPULSIVE DISORDER
     Dosage: 4 MILLIGRAM DAILY;
     Route: 048

REACTIONS (3)
  - Nervousness [Recovered/Resolved]
  - Product measured potency issue [Recovered/Resolved]
  - Aggression [Recovered/Resolved]

NARRATIVE: CASE EVENT DATE: 20130809
